FAERS Safety Report 20702691 (Version 1)
Quarter: 2022Q2

REPORT INFORMATION
  Report Type: Spontaneous
  Country: US (occurrence: US)
  Receive Date: 20220412
  Receipt Date: 20220412
  Transmission Date: 20220720
  Serious: No
  Sender: FDA-Public Use
  Company Number: US-BIOMARINAP-US-2022-142579

PATIENT
  Age: 6 Year
  Sex: Female
  Weight: 22.222 kg

DRUGS (2)
  1. KUVAN [Suspect]
     Active Substance: SAPROPTERIN DIHYDROCHLORIDE
     Indication: Phenylketonuria
     Dosage: 400 MILLIGRAM, QD
     Route: 048
  2. PERIFLEX [Concomitant]
     Indication: Product used for unknown indication

REACTIONS (1)
  - Abdominal pain upper [Unknown]
